FAERS Safety Report 8030560-3 (Version None)
Quarter: 2012Q1

REPORT INFORMATION
  Report Type: 
  Country: None (occurrence: None)
  Receive Date: 20120104
  Receipt Date: 20111215
  Transmission Date: 20120608
  Serious: Yes (Life-Threatening)
  Sender: FDA-Public Use
  Company Number: 54973 AE689

PATIENT
  Age: 1 Year
  Sex: Male

DRUGS (2)
  1. HYLAND'S BABY TEETHING TABLETS [Suspect]
     Indication: TEETHING
  2. HYLAND'S TEETHING TABLETS [Suspect]
     Indication: TEETHING

REACTIONS (2)
  - CONVULSION [None]
  - ALOPECIA [None]
